FAERS Safety Report 4953926-4 (Version None)
Quarter: 2006Q1

REPORT INFORMATION
  Report Type: 
  Country: None (occurrence: None)
  Receive Date: 20060327
  Receipt Date: 20050803
  Transmission Date: 20060701
  Serious: Yes (Death, Hospitalization, Other)
  Sender: FDA-Public Use
  Company Number: US-BRISTOL-MYERS SQUIBB COMPANY-13061866

PATIENT
  Age: 63 Year
  Sex: Male

DRUGS (10)
  1. BLINDED: MURAGLITAZAR [Suspect]
     Indication: DIABETES MELLITUS NON-INSULIN-DEPENDENT
     Dates: start: 20050415, end: 20050703
  2. BLINDED: GLIMEPIRIDE [Suspect]
     Indication: DIABETES MELLITUS NON-INSULIN-DEPENDENT
     Dates: start: 20050415, end: 20050703
  3. METFORMIN HYDROCHLORIDE [Suspect]
     Indication: DIABETES MELLITUS NON-INSULIN-DEPENDENT
     Route: 048
     Dates: start: 20040101, end: 20050708
  4. GLIPIZIDE [Concomitant]
     Dates: start: 20050708, end: 20050725
  5. ACTOS [Concomitant]
     Dates: start: 20050708, end: 20050725
  6. ZESTORETIC [Concomitant]
     Dosage: 1 DOSAGE FORM = 20/12.5 MG
     Dates: start: 20041030, end: 20050725
  7. ROLAIDS [Concomitant]
     Dates: start: 19840101
  8. VIAGRA [Concomitant]
     Dates: start: 20020101
  9. ASPIRIN [Concomitant]
     Dates: start: 20020101, end: 20050725
  10. TYLENOL [Concomitant]
     Dates: start: 20050719, end: 20050725

REACTIONS (5)
  - LUNG INFILTRATION [None]
  - METABOLIC ACIDOSIS [None]
  - RENAL FAILURE ACUTE [None]
  - RESPIRATORY FAILURE [None]
  - SEPSIS [None]
